FAERS Safety Report 7751816-5 (Version None)
Quarter: 2011Q3

REPORT INFORMATION
  Report Type: 
  Country: None (occurrence: None)
  Receive Date: 20110914
  Receipt Date: 20110914
  Transmission Date: 20111222
  Serious: Yes (Other)
  Sender: FDA-Public Use
  Company Number: None

PATIENT
  Age: 36 Year
  Sex: Female
  Weight: 99.7913 kg

DRUGS (4)
  1. PROTONIX [Concomitant]
  2. LISINOPRIL [Concomitant]
  3. VIBRYD 40 MG FOREST LABORATORIES [Suspect]
     Indication: MAJOR DEPRESSION
     Dosage: 40 MG QD ORAL/PO
     Route: 048
     Dates: start: 20110809, end: 20110901
  4. NORVASC [Concomitant]

REACTIONS (1)
  - HAEMATOCHEZIA [None]
